FAERS Safety Report 6326345-6 (Version None)
Quarter: 2009Q3

REPORT INFORMATION
  Report Type: 
  Country: None (occurrence: None)
  Receive Date: 20090821
  Receipt Date: 20090812
  Transmission Date: 20100115
  Serious: Yes (Other)
  Sender: FDA-Public Use
  Company Number: 2009US003089

PATIENT
  Age: 66 Year
  Sex: Female
  Weight: 68.5 kg

DRUGS (2)
  1. PROTOPIC [Suspect]
     Indication: DERMATITIS
     Dosage: 0.1 %, BID, TOPICAL
     Route: 061
     Dates: start: 20040101, end: 20060101
  2. ELIDEL [Suspect]
     Indication: DERMATITIS
     Dosage: TOPICAL
     Route: 061
     Dates: start: 20040101, end: 20060101

REACTIONS (5)
  - ACANTHOMA [None]
  - BREAST CANCER IN SITU [None]
  - BREAST CANCER METASTATIC [None]
  - METASTASES TO LYMPH NODES [None]
  - SEBORRHOEIC KERATOSIS [None]
